FAERS Safety Report 6707308-5 (Version None)
Quarter: 2010Q2

REPORT INFORMATION
  Report Type: 
  Country: None (occurrence: None)
  Receive Date: 20100503
  Receipt Date: 20090518
  Transmission Date: 20101027
  Serious: No
  Sender: FDA-Public Use
  Company Number: US-ASTRAZENECA-2009UW12826

PATIENT
  Age: 76 Year
  Sex: Female

DRUGS (6)
  1. NEXIUM [Suspect]
     Indication: GASTROOESOPHAGEAL REFLUX DISEASE
     Route: 048
  2. PRILOSEC [Concomitant]
     Route: 048
     Dates: start: 20081101
  3. METHOTREXATE [Concomitant]
  4. TOPROL-XL [Concomitant]
  5. CYMBALTA [Concomitant]
  6. NITROGLYCERIN [Concomitant]

REACTIONS (1)
  - GASTROOESOPHAGEAL REFLUX DISEASE [None]
